FAERS Safety Report 20307940 (Version 1)
Quarter: 2022Q1

REPORT INFORMATION
  Report Type: Spontaneous
  Country: GB (occurrence: GB)
  Receive Date: 20220107
  Receipt Date: 20220107
  Transmission Date: 20220424
  Serious: Yes (Disabling, Other)
  Sender: FDA-Public Use
  Company Number: None

PATIENT
  Age: 82 Year
  Sex: Female
  Weight: 43 kg

DRUGS (2)
  1. PROLIA [Suspect]
     Active Substance: DENOSUMAB
     Indication: Twin reversed arterial perfusion sequence malformation
     Dosage: 60 MILLIGRAM, 1 DOSE
     Route: 042
     Dates: start: 20170927
  2. CARDACE [RAMIPRIL] [Concomitant]
     Indication: Ill-defined disorder
     Dosage: UNK

REACTIONS (1)
  - Pathological fracture [Not Recovered/Not Resolved]

NARRATIVE: CASE EVENT DATE: 20210327
